FAERS Safety Report 19820939 (Version 1)
Quarter: 2021Q3

REPORT INFORMATION
  Report Type: Spontaneous
  Country: US (occurrence: US)
  Receive Date: 20210913
  Receipt Date: 20210913
  Transmission Date: 20211014
  Serious: Yes (Hospitalization)
  Sender: FDA-Public Use
  Company Number: US-STRIDES ARCOLAB LIMITED-2021SP027383

PATIENT
  Age: 72 Year
  Sex: Male

DRUGS (7)
  1. PREDNISONE. [Suspect]
     Active Substance: PREDNISONE
     Indication: ADDISON^S DISEASE
     Dosage: 5 MILLIGRAM
     Route: 065
  2. RIFAMPIN. [Interacting]
     Active Substance: RIFAMPIN
     Indication: LATENT TUBERCULOSIS
     Dosage: UNK
     Route: 065
  3. PREDNISONE. [Interacting]
     Active Substance: PREDNISONE
     Dosage: 15 MILLIGRAM (WAS TRIPLED)
     Route: 065
  4. APIXABAN [Concomitant]
     Active Substance: APIXABAN
     Indication: ATRIAL FIBRILLATION
     Dosage: UNK
     Route: 065
  5. PREDNISONE. [Interacting]
     Active Substance: PREDNISONE
     Dosage: 10 MILLIGRAM, BID
     Route: 065
  6. RIFAMPIN. [Interacting]
     Active Substance: RIFAMPIN
     Dosage: UNK RE INITIATED
     Route: 065
  7. ISONIAZID. [Concomitant]
     Active Substance: ISONIAZID
     Indication: LATENT TUBERCULOSIS
     Dosage: UNK
     Route: 065

REACTIONS (2)
  - Adrenocortical insufficiency acute [Recovered/Resolved]
  - Drug interaction [Unknown]
